FAERS Safety Report 7756935-5 (Version None)
Quarter: 2011Q3

REPORT INFORMATION
  Report Type: 
  Country: None (occurrence: None)
  Receive Date: 20110916
  Receipt Date: 20110908
  Transmission Date: 20111222
  Serious: Yes (Life-Threatening)
  Sender: FDA-Public Use
  Company Number: IT-GLAXOSMITHKLINE-B0746570A

PATIENT
  Sex: Female

DRUGS (14)
  1. CANDESARTAN CILEXETIL [Suspect]
     Indication: HYPERTENSION
     Dosage: 16MG PER DAY
     Route: 048
     Dates: start: 20110509, end: 20110524
  2. PIPERACILLIN AND TAZOBACTAM [Suspect]
     Indication: PRODUCT USED FOR UNKNOWN INDICATION
     Route: 065
  3. ACYCLOVIR [Suspect]
     Indication: PRODUCT USED FOR UNKNOWN INDICATION
     Route: 065
  4. FLUCONAZOLE [Concomitant]
     Indication: CANDIDURIA
     Dosage: 150MG PER DAY
     Route: 065
     Dates: start: 20110513, end: 20110521
  5. PANTOPRAZOLE [Suspect]
     Indication: ANTIPLATELET THERAPY
     Dosage: 40MG PER DAY
     Route: 048
     Dates: start: 20110510, end: 20110524
  6. SULFAMETHOXAZOLE AND TRIMETHOPRIM [Suspect]
     Indication: BRONCHOPNEUMONIA
     Dosage: 960MG TWICE PER DAY
     Route: 048
     Dates: start: 20110516, end: 20110521
  7. NISTATINA [Concomitant]
     Indication: ORAL CANDIDIASIS
     Route: 048
     Dates: start: 20110510, end: 20110518
  8. DOXAZOSIN MESYLATE [Suspect]
     Indication: HYPERTENSION
     Dosage: 2MG PER DAY
     Route: 048
     Dates: start: 20110509, end: 20110523
  9. NITROGLYCERIN [Suspect]
     Indication: MYOCARDIAL ISCHAEMIA
     Dosage: 1PAT PER DAY
     Route: 062
     Dates: start: 20110511, end: 20110525
  10. TRAMADOL HYDROCHLORIDE [Suspect]
     Indication: BACK PAIN
     Dosage: 100MG PER DAY
     Route: 048
     Dates: start: 20110516, end: 20110524
  11. POLYETHYLENE GLYCOL [Concomitant]
     Indication: CONSTIPATION
     Route: 065
     Dates: start: 20110511, end: 20110513
  12. FONDAPARINUX SODIUM [Suspect]
     Indication: THROMBOSIS PROPHYLAXIS
     Route: 058
     Dates: start: 20110511, end: 20110516
  13. TICLOPIDINA DOROM [Concomitant]
     Indication: MYOCARDIAL ISCHAEMIA
     Dosage: 250MG PER DAY
     Route: 048
     Dates: start: 20110510, end: 20110519
  14. FUROSEMIDE [Suspect]
     Indication: PRODUCT USED FOR UNKNOWN INDICATION
     Route: 065

REACTIONS (2)
  - PULMONARY EMBOLISM [None]
  - DEEP VEIN THROMBOSIS [None]
